FAERS Safety Report 12345357 (Version 1)
Quarter: 2016Q2

REPORT INFORMATION
  Report Type: Spontaneous
  Country: GB (occurrence: GB)
  Receive Date: 20160508
  Receipt Date: 20160508
  Transmission Date: 20160815
  Serious: Yes (Other)
  Sender: FDA-Public Use
  Company Number: GB-DEXPHARM-20160775

PATIENT
  Age: 87 Year
  Sex: Female
  Weight: 70.74 kg

DRUGS (6)
  1. DERMOL [Suspect]
     Active Substance: BENZALKONIUM CHLORIDE\CHLORHEXIDINE HYDROCHLORIDE\ISOPROPYL MYRISTATE\PARAFFIN
  2. ASPIRIN. [Concomitant]
     Active Substance: ASPIRIN
  3. MONOMIL XL [Suspect]
     Active Substance: ISOSORBIDE MONONITRATE
     Indication: KOUNIS SYNDROME
     Dosage: TABLETS ON PRESCRIPTION
     Route: 048
     Dates: start: 20160420
  4. NICORANDIL [Suspect]
     Active Substance: NICORANDIL
     Indication: KOUNIS SYNDROME
     Route: 048
     Dates: start: 20160420
  5. BISOPROLOL [Concomitant]
     Active Substance: BISOPROLOL
  6. OMEPRAZOLE. [Concomitant]
     Active Substance: OMEPRAZOLE

REACTIONS (2)
  - Inflammation [Not Recovered/Not Resolved]
  - Pain in extremity [Not Recovered/Not Resolved]
